FAERS Safety Report 23277545 (Version 1)
Quarter: 2023Q4

REPORT INFORMATION
  Report Type: Report from Study
  Country: US (occurrence: US)
  Receive Date: 20231208
  Receipt Date: 20231208
  Transmission Date: 20240110
  Serious: Yes (Hospitalization)
  Sender: FDA-Public Use
  Company Number: US-JNJFOC-20231210604

PATIENT

DRUGS (22)
  1. TECVAYLI [Suspect]
     Active Substance: TECLISTAMAB-CQYV
     Indication: Product used for unknown indication
     Route: 058
     Dates: start: 20230612
  2. TECVAYLI [Suspect]
     Active Substance: TECLISTAMAB-CQYV
     Route: 058
     Dates: start: 20230619
  3. TECVAYLI [Suspect]
     Active Substance: TECLISTAMAB-CQYV
     Route: 058
     Dates: start: 20230626
  4. TECVAYLI [Suspect]
     Active Substance: TECLISTAMAB-CQYV
     Dosage: 10-JUL-2023, TREATMENT HELD-HOSPITALIZED DUE TO KIDNEY STONE
     Route: 058
     Dates: start: 20230703, end: 20230710
  5. TECVAYLI [Suspect]
     Active Substance: TECLISTAMAB-CQYV
     Dosage: HELD - HEADACHE NOT DETERMINED TO BE DUE TO TECLISTIMAB, HELD AND MONITORING
     Route: 058
     Dates: end: 20230717
  6. TECVAYLI [Suspect]
     Active Substance: TECLISTAMAB-CQYV
     Route: 058
     Dates: start: 20230724
  7. TECVAYLI [Suspect]
     Active Substance: TECLISTAMAB-CQYV
     Route: 058
     Dates: start: 20230731
  8. TECVAYLI [Suspect]
     Active Substance: TECLISTAMAB-CQYV
     Route: 058
     Dates: start: 20230807
  9. TECVAYLI [Suspect]
     Active Substance: TECLISTAMAB-CQYV
     Route: 058
     Dates: start: 20230814
  10. TECVAYLI [Suspect]
     Active Substance: TECLISTAMAB-CQYV
     Route: 058
     Dates: start: 20230821
  11. TECVAYLI [Suspect]
     Active Substance: TECLISTAMAB-CQYV
     Route: 058
     Dates: start: 20230829
  12. TECVAYLI [Suspect]
     Active Substance: TECLISTAMAB-CQYV
     Route: 058
     Dates: start: 20230905
  13. TECVAYLI [Suspect]
     Active Substance: TECLISTAMAB-CQYV
     Route: 058
     Dates: start: 20230911
  14. TECVAYLI [Suspect]
     Active Substance: TECLISTAMAB-CQYV
     Route: 058
     Dates: start: 20230918
  15. TECVAYLI [Suspect]
     Active Substance: TECLISTAMAB-CQYV
     Route: 058
     Dates: start: 20230925
  16. TECVAYLI [Suspect]
     Active Substance: TECLISTAMAB-CQYV
     Route: 058
     Dates: start: 20231002
  17. TECVAYLI [Suspect]
     Active Substance: TECLISTAMAB-CQYV
     Route: 058
     Dates: start: 20231009
  18. TECVAYLI [Suspect]
     Active Substance: TECLISTAMAB-CQYV
     Route: 058
     Dates: start: 20231016
  19. TECVAYLI [Suspect]
     Active Substance: TECLISTAMAB-CQYV
     Route: 058
     Dates: start: 20231023
  20. TECVAYLI [Suspect]
     Active Substance: TECLISTAMAB-CQYV
     Dosage: HELD PER PATIENT REQUEST - VACATION
     Route: 058
     Dates: start: 20231102, end: 20231109
  21. TECVAYLI [Suspect]
     Active Substance: TECLISTAMAB-CQYV
     Dosage: HELD-HOSPITALIZED WITH PYLEONEPHRITIS
     Route: 058
     Dates: end: 20231116
  22. TECVAYLI [Suspect]
     Active Substance: TECLISTAMAB-CQYV
     Dosage: HELD-RECOVERING FROM HOSPITALIZATION-ON ANTIBIOTICS
     Route: 058
     Dates: end: 20231123

REACTIONS (3)
  - Pyelonephritis [Recovering/Resolving]
  - Nephrolithiasis [Unknown]
  - Headache [Unknown]

NARRATIVE: CASE EVENT DATE: 20230710
